FAERS Safety Report 8890097 (Version 1)
Quarter: 2012Q4

REPORT INFORMATION
  Report Type: Spontaneous
  Country: US (occurrence: None)
  Receive Date: 20121105
  Receipt Date: 20121105
  Transmission Date: 20130627
  Serious: Yes (Disabling, Other)
  Sender: FDA-Public Use
  Company Number: None

PATIENT
  Age: 68 Year
  Sex: Male
  Weight: 83.92 kg

DRUGS (1)
  1. PROSCAR [Suspect]
     Indication: ENLARGED PROSTATE
     Dates: start: 20060201, end: 20070901

REACTIONS (2)
  - Erectile dysfunction [None]
  - Peyronie^s disease [None]
